FAERS Safety Report 6882962-6 (Version None)
Quarter: 2010Q3

REPORT INFORMATION
  Report Type: 
  Country: None (occurrence: None)
  Receive Date: 20100727
  Receipt Date: 20100713
  Transmission Date: 20110219
  Serious: Yes (Hospitalization, Other)
  Sender: FDA-Public Use
  Company Number: 1000012708

PATIENT
  Age: 85 Year
  Sex: Female
  Weight: 52 kg

DRUGS (6)
  1. MEMANTINE HCL [Suspect]
     Indication: DEMENTIA ALZHEIMER'S TYPE
     Dosage: 20 MG (20 MG, 1 IN 1D) ,ORAL
     Route: 048
     Dates: start: 20100120, end: 20100216
  2. SINTROM [Concomitant]
  3. HEMIGOXINE [Concomitant]
  4. SECTRAL [Concomitant]
  5. CITALOPRAM HYDROBROMIDE [Concomitant]
  6. PERINDOPRIL ERBUMINE [Concomitant]

REACTIONS (3)
  - CARDIAC FAILURE [None]
  - CONDITION AGGRAVATED [None]
  - OEDEMA PERIPHERAL [None]
